FAERS Safety Report 9290019 (Version 1)
Quarter: 2013Q2

REPORT INFORMATION
  Report Type: Spontaneous
  Country: US (occurrence: None)
  Receive Date: 20130514
  Receipt Date: 20130514
  Transmission Date: 20140414
  Serious: Yes (Other)
  Sender: FDA-Public Use
  Company Number: None

PATIENT
  Age: 68 Year
  Sex: Female

DRUGS (5)
  1. DAPTOMYCIN [Suspect]
     Indication: ARTHRITIS INFECTIVE
     Route: 042
     Dates: start: 20120111, end: 20120124
  2. ROSUVASTATIN [Concomitant]
  3. OMEPRAZOLE [Concomitant]
  4. CARVEDIOL [Concomitant]
  5. EXFORGE [Concomitant]

REACTIONS (6)
  - Drug-induced liver injury [None]
  - Nausea [None]
  - Asthenia [None]
  - Alanine aminotransferase increased [None]
  - Aspartate aminotransferase increased [None]
  - Cholelithiasis [None]
